FAERS Safety Report 14117736 (Version 1)
Quarter: 2017Q4

REPORT INFORMATION
  Report Type: Spontaneous
  Country: US (occurrence: US)
  Receive Date: 20171023
  Receipt Date: 20171023
  Transmission Date: 20180321
  Serious: No
  Sender: FDA-Public Use
  Company Number: US-ABBVIE-17P-163-1856277-00

PATIENT
  Sex: Female

DRUGS (1)
  1. LUPRON DEPOT [Suspect]
     Active Substance: LEUPROLIDE ACETATE
     Indication: ENDOMETRIOSIS
     Route: 050

REACTIONS (14)
  - Haematemesis [Unknown]
  - Dyspnoea [Unknown]
  - Gastric disorder [Unknown]
  - Insomnia [Unknown]
  - Weight increased [Unknown]
  - Disturbance in attention [Unknown]
  - Fallopian tube disorder [Unknown]
  - Abdominal distension [Unknown]
  - Fungal infection [Unknown]
  - Depression [Unknown]
  - Mental fatigue [Unknown]
  - Arthralgia [Unknown]
  - Adverse drug reaction [Unknown]
  - Ovarian disorder [Unknown]
